FAERS Safety Report 5873357-2 (Version None)
Quarter: 2008Q3

REPORT INFORMATION
  Report Type: 
  Country: None (occurrence: None)
  Receive Date: 20080908
  Receipt Date: 20080903
  Transmission Date: 20090109
  Serious: Yes (Death, Hospitalization)
  Sender: FDA-Public Use
  Company Number: CL-NOVOPROD-279112

PATIENT
  Age: 13 Year
  Sex: Female
  Weight: 38 kg

DRUGS (1)
  1. NOVOSEVEN [Suspect]
     Indication: HAEMORRHAGE
     Dosage: 189.5 MCG/KG EVERY SECOND HOUR 3 TIMES.
     Dates: start: 20080324

REACTIONS (2)
  - MULTI-ORGAN FAILURE [None]
  - RENAL FAILURE ACUTE [None]
